FAERS Safety Report 13135443 (Version 1)
Quarter: 2017Q1

REPORT INFORMATION
  Report Type: Report from Study
  Country: None (occurrence: BR)
  Receive Date: 20170120
  Receipt Date: 20170120
  Transmission Date: 20170428
  Serious: Yes (Other)
  Sender: FDA-Public Use
  Company Number: BR-ABBVIE-17K-020-1839770-00

PATIENT
  Age: 49 Year
  Sex: Male
  Weight: 77.5 kg

DRUGS (8)
  1. LOSARTAN. [Concomitant]
     Active Substance: LOSARTAN
     Indication: BLOOD PRESSURE MEASUREMENT
     Route: 048
     Dates: start: 20150101
  2. CYCLOBENZAPRINE [Concomitant]
     Active Substance: CYCLOBENZAPRINE
     Indication: INSOMNIA
     Route: 048
     Dates: start: 20161001
  3. HYDROCHLOROTHIAZIDE. [Concomitant]
     Active Substance: HYDROCHLOROTHIAZIDE
     Indication: BLOOD PRESSURE MEASUREMENT
     Route: 048
     Dates: start: 20160901
  4. RANITIDINE. [Concomitant]
     Active Substance: RANITIDINE
     Indication: LIVER DISORDER
     Route: 048
     Dates: start: 20160901
  5. HUMIRA [Suspect]
     Active Substance: ADALIMUMAB
     Indication: ANKYLOSING SPONDYLITIS
     Route: 058
     Dates: start: 20150909
  6. METHOTREXATE. [Concomitant]
     Active Substance: METHOTREXATE
     Indication: INSOMNIA
     Route: 048
     Dates: start: 20161001
  7. FOLIC ACID. [Concomitant]
     Active Substance: FOLIC ACID
     Indication: LIVER DISORDER
     Route: 048
     Dates: start: 20160901
  8. MELOXICAM. [Concomitant]
     Active Substance: MELOXICAM
     Indication: INSOMNIA
     Route: 048
     Dates: start: 20161001

REACTIONS (4)
  - Hepatic function abnormal [Recovered/Resolved]
  - Actinic cheilitis [Unknown]
  - Sleep disorder [Unknown]
  - Dermatitis allergic [Recovering/Resolving]

NARRATIVE: CASE EVENT DATE: 20160801
